FAERS Safety Report 12383229 (Version 1)
Quarter: 2016Q2

REPORT INFORMATION
  Report Type: Spontaneous
  Country: US (occurrence: US)
  Receive Date: 20160518
  Receipt Date: 20160518
  Transmission Date: 20160815
  Serious: Yes (Other)
  Sender: FDA-Public Use
  Company Number: US-LUNDBECK-DKLU2013871

PATIENT
  Sex: Male

DRUGS (7)
  1. ONFI [Suspect]
     Active Substance: CLOBAZAM
     Indication: SEIZURE
     Route: 065
  2. CANNABINOIDS OIL [Suspect]
     Active Substance: CANNABIDIOL
     Indication: SEIZURE
     Route: 065
  3. ONFI [Suspect]
     Active Substance: CLOBAZAM
     Route: 065
  4. SABRIL [Suspect]
     Active Substance: VIGABATRIN
     Route: 065
  5. KEPPRA [Suspect]
     Active Substance: LEVETIRACETAM
     Indication: SEIZURE
     Dosage: HIGH DOSE
     Route: 065
  6. SABRIL [Suspect]
     Active Substance: VIGABATRIN
     Indication: INFANTILE SPASMS
     Route: 065
  7. ONFI [Suspect]
     Active Substance: CLOBAZAM
     Route: 065

REACTIONS (5)
  - Seizure [Not Recovered/Not Resolved]
  - Dyskinesia [Recovered/Resolved]
  - Aphasia [Recovered/Resolved]
  - Urine output decreased [Recovered/Resolved]
  - Anticonvulsant drug level increased [Not Recovered/Not Resolved]
